FAERS Safety Report 16058307 (Version 2)
Quarter: 2019Q1

REPORT INFORMATION
  Report Type: Spontaneous
  Country: US (occurrence: US)
  Receive Date: 20190311
  Receipt Date: 20190315
  Transmission Date: 20190418
  Serious: Yes (Hospitalization, Other)
  Sender: FDA-Public Use
  Company Number: US-ASTRAZENECA-2018SF48355

PATIENT
  Age: 23484 Day
  Sex: Male

DRUGS (27)
  1. ATORVASTATIN [Concomitant]
     Active Substance: ATORVASTATIN
  2. INSULIN [Concomitant]
     Active Substance: INSULIN NOS
  3. ACETAMINOPHEN. [Concomitant]
     Active Substance: ACETAMINOPHEN
  4. LOVAZA [Concomitant]
     Active Substance: OMEGA-3-ACID ETHYL ESTERS
  5. ASPIRIN. [Concomitant]
     Active Substance: ASPIRIN
  6. PIOGLITAZONE. [Concomitant]
     Active Substance: PIOGLITAZONE
  7. PLAVIX [Concomitant]
     Active Substance: CLOPIDOGREL BISULFATE
  8. PROTONIX [Suspect]
     Active Substance: PANTOPRAZOLE SODIUM
     Route: 065
  9. AMLODIPINE [Concomitant]
     Active Substance: AMLODIPINE BESYLATE
  10. METFORMIN [Concomitant]
     Active Substance: METFORMIN HYDROCHLORIDE
  11. GLUCAGON. [Concomitant]
     Active Substance: GLUCAGON
  12. ONDANSETRON [Concomitant]
     Active Substance: ONDANSETRON
  13. FENOFIBRATE. [Concomitant]
     Active Substance: FENOFIBRATE
  14. JANUVIA [Concomitant]
     Active Substance: SITAGLIPTIN PHOSPHATE
  15. LEVEMIR [Concomitant]
     Active Substance: INSULIN DETEMIR
  16. PIOGLITAZONE. [Concomitant]
     Active Substance: PIOGLITAZONE
  17. HYDROCHLOROTHIAZIDE. [Concomitant]
     Active Substance: HYDROCHLOROTHIAZIDE
  18. PRILOSEC [Suspect]
     Active Substance: OMEPRAZOLE MAGNESIUM
     Route: 048
  19. CILOSTAZOL. [Concomitant]
     Active Substance: CILOSTAZOL
  20. GLIMEPIRIDE. [Concomitant]
     Active Substance: GLIMEPIRIDE
  21. SIMVASTATIN. [Concomitant]
     Active Substance: SIMVASTATIN
  22. ATENOLOL. [Concomitant]
     Active Substance: ATENOLOL
  23. LISINOPRIL. [Concomitant]
     Active Substance: LISINOPRIL
  24. PANTOPRAZOLE [Concomitant]
     Active Substance: PANTOPRAZOLE
     Route: 065
  25. RANITIDINE. [Concomitant]
     Active Substance: RANITIDINE
  26. PROMETHAZINE [Concomitant]
     Active Substance: PROMETHAZINE\PROMETHAZINE HYDROCHLORIDE
  27. ADVAIR DISKUS [Concomitant]
     Active Substance: FLUTICASONE PROPIONATE\SALMETEROL XINAFOATE

REACTIONS (3)
  - Acute kidney injury [Unknown]
  - Renal failure [Unknown]
  - Chronic kidney disease [Unknown]

NARRATIVE: CASE EVENT DATE: 20180628
